FAERS Safety Report 6972214-8 (Version None)
Quarter: 2010Q3

REPORT INFORMATION
  Report Type: 
  Country: None (occurrence: None)
  Receive Date: 20100909
  Receipt Date: 20100901
  Transmission Date: 20110219
  Serious: No
  Sender: FDA-Public Use
  Company Number: 2009BI034944

PATIENT
  Age: 30 Year
  Sex: Female

DRUGS (5)
  1. TYSABRI [Suspect]
     Indication: MULTIPLE SCLEROSIS
     Route: 042
     Dates: start: 20090422, end: 20091001
  2. TYSABRI [Suspect]
     Route: 042
     Dates: start: 20091201
  3. AVONEX [Concomitant]
     Indication: MULTIPLE SCLEROSIS
     Route: 030
     Dates: start: 20080313
  4. NEURONTIN [Concomitant]
     Indication: DYSKINESIA
  5. NEURONTIN [Concomitant]
     Indication: PAIN

REACTIONS (22)
  - AGGRESSION [None]
  - BLOOD BILIRUBIN ABNORMAL [None]
  - BRONCHITIS [None]
  - CARDIAC FLUTTER [None]
  - CARDIAC MURMUR [None]
  - CHEST PAIN [None]
  - DIZZINESS [None]
  - FATIGUE [None]
  - FEELING OF BODY TEMPERATURE CHANGE [None]
  - FIBROMYALGIA [None]
  - HEADACHE [None]
  - MEMORY IMPAIRMENT [None]
  - MIGRAINE [None]
  - MOOD SWINGS [None]
  - NASAL CONGESTION [None]
  - NASOPHARYNGITIS [None]
  - PAIN IN EXTREMITY [None]
  - RESPIRATORY TRACT CONGESTION [None]
  - SINUSITIS [None]
  - TINNITUS [None]
  - URINARY TRACT INFECTION [None]
  - VISION BLURRED [None]
